FAERS Safety Report 9475830 (Version 2)
Quarter: 2013Q3

REPORT INFORMATION
  Report Type: Spontaneous
  Country: US (occurrence: US)
  Receive Date: 20130826
  Receipt Date: 20130830
  Transmission Date: 20140515
  Serious: No
  Sender: FDA-Public Use
  Company Number: US-PFIZER INC-2013244562

PATIENT
  Sex: Female

DRUGS (3)
  1. ADVIL [Suspect]
     Indication: PYREXIA
     Dosage: UNK
     Dates: start: 2013, end: 2013
  2. ADVIL [Suspect]
     Indication: ARTHRALGIA
  3. ADVIL [Suspect]
     Indication: BACK PAIN

REACTIONS (4)
  - Hypersensitivity [Unknown]
  - Fatigue [Unknown]
  - Body temperature increased [Unknown]
  - Erythema [Unknown]
